FAERS Safety Report 24160730 (Version 1)
Quarter: 2024Q3

REPORT INFORMATION
  Report Type: Spontaneous
  Country: US (occurrence: US)
  Receive Date: 20240801
  Receipt Date: 20240801
  Transmission Date: 20241017
  Serious: No
  Sender: TEVA
  Company Number: US-TEVA-VS-3223607

PATIENT
  Sex: Female

DRUGS (1)
  1. PIROXICAM [Suspect]
     Active Substance: PIROXICAM
     Indication: Product used for unknown indication
     Dosage: TWO 10MG CAPSULES
     Route: 065

REACTIONS (1)
  - Drug ineffective [Unknown]
